FAERS Safety Report 26135924 (Version 1)
Quarter: 2025Q4

REPORT INFORMATION
  Report Type: Report from Study
  Country: CN (occurrence: CN)
  Receive Date: 20251209
  Receipt Date: 20251209
  Transmission Date: 20260118
  Serious: Yes (Other)
  Sender: JOHNSON AND JOHNSON
  Company Number: CN-JNJFOC-20251208301

PATIENT

DRUGS (3)
  1. INFLIXIMAB [Suspect]
     Active Substance: INFLIXIMAB
     Indication: Autoimmune disorder
     Route: 041
  2. USTEKINUMAB [Suspect]
     Active Substance: USTEKINUMAB
     Indication: Autoimmune disorder
     Route: 058
  3. GOLIMUMAB [Suspect]
     Active Substance: GOLIMUMAB
     Indication: Autoimmune disorder
     Route: 058

REACTIONS (2)
  - Breast cancer [Unknown]
  - Treatment failure [Unknown]
